FAERS Safety Report 24801048 (Version 2)
Quarter: 2025Q1

REPORT INFORMATION
  Report Type: Report from Study
  Country: BR (occurrence: BR)
  Receive Date: 20250102
  Receipt Date: 20250211
  Transmission Date: 20250409
  Serious: Yes (Other)
  Sender: NOVARTIS
  Company Number: BR-002147023-NVSC2024BR228602

PATIENT
  Sex: Female

DRUGS (2)
  1. KISQALI [Suspect]
     Active Substance: RIBOCICLIB
     Indication: Product used for unknown indication
     Route: 065
  2. LETROZOLE [Suspect]
     Active Substance: LETROZOLE
     Indication: Product used for unknown indication
     Route: 065

REACTIONS (6)
  - Electrocardiogram QT interval abnormal [Unknown]
  - Nausea [Recovering/Resolving]
  - Somnolence [Unknown]
  - Dizziness [Recovering/Resolving]
  - Cardiac disorder [Unknown]
  - Alopecia [Not Recovered/Not Resolved]
